FAERS Safety Report 6056214-0 (Version None)
Quarter: 2009Q1

REPORT INFORMATION
  Report Type: 
  Country: None (occurrence: None)
  Receive Date: 20090123
  Receipt Date: 20090123
  Transmission Date: 20090719
  Serious: Yes (Hospitalization)
  Sender: FDA-Public Use
  Company Number: None

PATIENT
  Sex: Male
  Weight: 53.6 kg

DRUGS (2)
  1. FLUOROURACIL [Suspect]
     Dosage: 3465 MG
  2. LEUCOVORIN CALCIUM [Suspect]
     Dosage: 167 MG

REACTIONS (5)
  - HEART RATE INCREASED [None]
  - HYPOTENSION [None]
  - LOSS OF CONSCIOUSNESS [None]
  - PNEUMONIA [None]
  - UNRESPONSIVE TO STIMULI [None]
